FAERS Safety Report 11688332 (Version 1)
Quarter: 2015Q4

REPORT INFORMATION
  Report Type: Spontaneous
  Country: CA (occurrence: CA)
  Receive Date: 20151031
  Receipt Date: 20151031
  Transmission Date: 20160304
  Serious: Yes (Other)
  Sender: FDA-Public Use
  Company Number: CA-TEVA-604021ACC

PATIENT
  Age: 75 Year
  Sex: Female

DRUGS (2)
  1. FOSINOPRIL [Concomitant]
     Active Substance: FOSINOPRIL
  2. CARVEDILOL. [Suspect]
     Active Substance: CARVEDILOL
     Indication: PRODUCT USED FOR UNKNOWN INDICATION
     Dosage: 12.5 MILLIGRAM DAILY;
     Route: 065

REACTIONS (4)
  - Blood pressure abnormal [Unknown]
  - Dizziness [Unknown]
  - Heart rate abnormal [Unknown]
  - Lethargy [Unknown]
